FAERS Safety Report 4759035-1 (Version None)
Quarter: 2005Q3

REPORT INFORMATION
  Report Type: 
  Country: None (occurrence: None)
  Receive Date: 20050901
  Receipt Date: 20050829
  Transmission Date: 20060218
  Serious: Yes (Hospitalization)
  Sender: FDA-Public Use
  Company Number: 2005112306

PATIENT
  Age: 41 Year
  Sex: Male
  Weight: 62.7 kg

DRUGS (2)
  1. ZIDOVUDINE [Suspect]
     Indication: HIV INFECTION
     Route: 048
     Dates: start: 19991206, end: 20000406
  2. EFAVIRENZ [Concomitant]
     Indication: HIV INFECTION
     Dosage: 600MG PER DAY
     Route: 048
     Dates: start: 19991206

REACTIONS (2)
  - ANAEMIA [None]
  - RESPIRATORY FAILURE [None]
